FAERS Safety Report 9714567 (Version 1)
Quarter: 2013Q4

REPORT INFORMATION
  Report Type: Spontaneous
  Country: DE (occurrence: DE)
  Receive Date: 20131126
  Receipt Date: 20131126
  Transmission Date: 20140711
  Serious: Yes (Disabling)
  Sender: FDA-Public Use
  Company Number: DE-ALLERGAN-1318252US

PATIENT
  Age: 48 Year
  Sex: Female

DRUGS (1)
  1. BOTOX [Suspect]
     Indication: MOBILITY DECREASED
     Dosage: 100 UNITS, SINGLE
     Dates: start: 20130301, end: 20130301

REACTIONS (4)
  - Spastic paralysis [Recovered/Resolved with Sequelae]
  - Gait spastic [Recovered/Resolved with Sequelae]
  - Fall [Unknown]
  - Sleep disorder [Recovered/Resolved with Sequelae]
